FAERS Safety Report 7430107-6 (Version None)
Quarter: 2011Q2

REPORT INFORMATION
  Report Type: 
  Country: None (occurrence: None)
  Receive Date: 20110421
  Receipt Date: 20101126
  Transmission Date: 20111010
  Serious: No
  Sender: FDA-Public Use
  Company Number: US-ASTRAZENECA-2005UW13316

PATIENT
  Age: 65 Year
  Sex: Female
  Weight: 90.7 kg

DRUGS (8)
  1. TOPROL-XL [Suspect]
     Indication: ARRHYTHMIA
     Route: 048
     Dates: start: 20050401
  2. ACETAMINOPHEN [Concomitant]
  3. PEPCID [Concomitant]
  4. KLONOPIN [Concomitant]
  5. ASPIRIN [Concomitant]
  6. TOPROL-XL [Suspect]
     Indication: HYPERTENSION
     Route: 048
     Dates: start: 20050401
  7. HYDROCHLOROTHIAZIDE [Concomitant]
  8. DOMPERIDONE [Concomitant]

REACTIONS (7)
  - NECK PAIN [None]
  - MYALGIA [None]
  - OEDEMA PERIPHERAL [None]
  - ALOPECIA [None]
  - HEADACHE [None]
  - HYPERTENSION [None]
  - MUSCULOSKELETAL PAIN [None]
